FAERS Safety Report 9233323 (Version 3)
Quarter: 2013Q2

REPORT INFORMATION
  Report Type: Spontaneous
  Country: US (occurrence: US)
  Receive Date: 20130416
  Receipt Date: 20130429
  Transmission Date: 20140414
  Serious: Yes (Hospitalization)
  Sender: FDA-Public Use
  Company Number: US-PFIZER INC-2013117769

PATIENT
  Age: 76 Year
  Sex: Female
  Weight: 50.79 kg

DRUGS (4)
  1. PROTONIX [Suspect]
     Indication: GASTROOESOPHAGEAL REFLUX DISEASE
     Dosage: 40 MG, 1X/DAY
     Route: 048
     Dates: start: 2012, end: 201304
  2. PROTONIX [Suspect]
     Indication: HERNIA
  3. ALBUTEROL [Concomitant]
     Dosage: UNK
  4. MYLANTA [Concomitant]
     Indication: DYSPEPSIA
     Dosage: UNK

REACTIONS (4)
  - Cardiac failure congestive [Unknown]
  - Dyspnoea [Unknown]
  - Lung disorder [Unknown]
  - Drug ineffective [Unknown]
